FAERS Safety Report 6119763-2 (Version None)
Quarter: 2009Q1

REPORT INFORMATION
  Report Type: 
  Country: None (occurrence: None)
  Receive Date: 20090316
  Receipt Date: 20090311
  Transmission Date: 20090719
  Serious: Yes (Hospitalization)
  Sender: FDA-Public Use
  Company Number: FR-ASTRAZENECA-2009CG00517

PATIENT
  Age: 25493 Day
  Sex: Female

DRUGS (4)
  1. MERONEM [Suspect]
     Route: 042
     Dates: start: 20081215, end: 20081217
  2. TAZOCILLINE [Suspect]
     Route: 042
     Dates: start: 20081212, end: 20081213
  3. CIFLOX [Suspect]
     Route: 042
     Dates: start: 20081212, end: 20081217
  4. FORTUM [Concomitant]
     Dates: start: 20081213, end: 20081215

REACTIONS (1)
  - TOXIC SKIN ERUPTION [None]
